FAERS Safety Report 6533881-6 (Version None)
Quarter: 2010Q1

REPORT INFORMATION
  Report Type: 
  Country: None (occurrence: None)
  Receive Date: 20100111
  Receipt Date: 20091104
  Transmission Date: 20100710
  Serious: No
  Sender: FDA-Public Use
  Company Number: US-ABBOTT-09P-163-0607430-00

PATIENT
  Sex: Male

DRUGS (10)
  1. VICODIN [Suspect]
     Indication: DRUG USE FOR UNKNOWN INDICATION
     Dosage: 5-500MG
     Route: 048
  2. REVLIMID [Suspect]
     Indication: MULTIPLE MYELOMA
     Dosage: 15 MG DAILY
     Dates: start: 20090901
  3. XANAX [Concomitant]
     Indication: DRUG USE FOR UNKNOWN INDICATION
     Dosage: 0.5 MG DAILY
  4. ZOLOFT [Concomitant]
     Indication: DRUG USE FOR UNKNOWN INDICATION
     Dosage: 50MG DAILY
  5. PREDNISONE [Concomitant]
     Indication: DRUG USE FOR UNKNOWN INDICATION
     Dosage: 10MG DAILY
  6. NEURONTIN [Concomitant]
     Indication: DRUG USE FOR UNKNOWN INDICATION
     Dosage: 300MG DAILY
     Route: 048
  7. LOVENOX [Concomitant]
     Indication: DRUG USE FOR UNKNOWN INDICATION
     Dosage: 40/0.4
  8. RESTORIL [Concomitant]
     Indication: DRUG USE FOR UNKNOWN INDICATION
     Dosage: 15MG DAILY
     Route: 048
  9. TYLENOL (CAPLET) [Concomitant]
     Indication: DRUG USE FOR UNKNOWN INDICATION
     Dosage: 500MG DAILY
     Route: 048
  10. VYTORIN [Concomitant]
     Indication: DRUG USE FOR UNKNOWN INDICATION
     Dosage: 10-80
     Route: 048

REACTIONS (1)
  - CONSTIPATION [None]
